FAERS Safety Report 7447858-X (Version None)
Quarter: 2011Q2

REPORT INFORMATION
  Report Type: 
  Country: None (occurrence: None)
  Receive Date: 20110429
  Receipt Date: 20100326
  Transmission Date: 20111010
  Serious: No
  Sender: FDA-Public Use
  Company Number: US-ASTRAZENECA-2010SE10420

PATIENT
  Age: 67 Year
  Sex: Female
  Weight: 67.6 kg

DRUGS (3)
  1. NEXIUM [Suspect]
     Indication: GASTROOESOPHAGEAL REFLUX DISEASE
     Route: 048
  2. NEXIUM [Suspect]
     Route: 048
  3. FOSAMAX [Concomitant]

REACTIONS (6)
  - INCREASED UPPER AIRWAY SECRETION [None]
  - GASTROOESOPHAGEAL REFLUX DISEASE [None]
  - FLATULENCE [None]
  - DRUG DOSE OMISSION [None]
  - ABDOMINAL DISTENSION [None]
  - COUGH [None]
